FAERS Safety Report 11074710 (Version 2)
Quarter: 2015Q2

REPORT INFORMATION
  Report Type: Spontaneous
  Country: MX (occurrence: MX)
  Receive Date: 20150429
  Receipt Date: 20150527
  Transmission Date: 20150821
  Serious: No
  Sender: FDA-Public Use
  Company Number: PHHY2015MX051289

PATIENT
  Sex: Female

DRUGS (7)
  1. ANAPSIQUE [Concomitant]
     Indication: PAIN
  2. ARAVA [Concomitant]
     Active Substance: LEFLUNOMIDE
     Indication: ARTHRITIS
     Dosage: UNK
     Route: 065
  3. METFORMIN [Concomitant]
     Active Substance: METFORMIN HYDROCHLORIDE
     Indication: DIABETES MELLITUS
     Dosage: UNK
     Route: 065
  4. TRASIK [Concomitant]
     Indication: DISCOMFORT
     Dosage: UNK
     Route: 065
  5. TRILEPTAL [Suspect]
     Active Substance: OXCARBAZEPINE
     Indication: PAIN
     Dosage: 2 DF, QD
     Route: 065
     Dates: start: 20141101, end: 20150504
  6. TRASIK [Concomitant]
     Indication: PAIN
  7. ANAPSIQUE [Concomitant]
     Indication: DISCOMFORT
     Dosage: UNK
     Route: 065

REACTIONS (1)
  - Off label use [Unknown]

NARRATIVE: CASE EVENT DATE: 20141101
